FAERS Safety Report 22160241 (Version 1)
Quarter: 2023Q1

REPORT INFORMATION
  Report Type: Spontaneous
  Country: US (occurrence: None)
  Receive Date: 20230330
  Receipt Date: 20230330
  Transmission Date: 20230417
  Serious: Yes (Other)
  Sender: FDA-Public Use
  Company Number: None

PATIENT
  Age: 70 Year
  Sex: Female
  Weight: 82.6 kg

DRUGS (18)
  1. TRADJENTA [Suspect]
     Active Substance: LINAGLIPTIN
     Indication: Type 2 diabetes mellitus
     Dosage: 5 MG DAILY ORAL
     Route: 048
     Dates: start: 20220728, end: 20221024
  2. ASPIRIN [Concomitant]
     Active Substance: ASPIRIN
  3. AMLODIPINE [Concomitant]
     Active Substance: AMLODIPINE BESYLATE
     Dates: start: 20220610
  4. ATORVASTATIN [Concomitant]
     Active Substance: ATORVASTATIN
     Dates: start: 20220523, end: 20230322
  5. Carvedilol 25mg (BID) [Concomitant]
     Dates: start: 20220523
  6. Clonidine 0.1mg (PRN) [Concomitant]
     Dates: start: 20220613
  7. LOSARTAN [Concomitant]
     Active Substance: LOSARTAN
     Dates: start: 20220523
  8. QUETIAPINE [Concomitant]
     Active Substance: QUETIAPINE
     Dates: start: 20220520
  9. SERTRALINE HYDROCHLORIDE [Concomitant]
     Active Substance: SERTRALINE HYDROCHLORIDE
     Dates: start: 20220311, end: 20221024
  10. TRAZODONE [Concomitant]
     Active Substance: TRAZODONE HYDROCHLORIDE
     Dates: start: 20220407, end: 20221024
  11. Glipizide XL 10mg [Concomitant]
     Dates: start: 20220124, end: 20221024
  12. LEVOTHYROXINE [Concomitant]
     Active Substance: LEVOTHYROXINE
     Dates: start: 20220327
  13. Metformin XR 1000mg (BID) [Concomitant]
     Dates: start: 20220727
  14. Novolog (SS) [Concomitant]
     Dates: start: 20211229
  15. ESOMEPRAZOLE [Concomitant]
     Active Substance: ESOMEPRAZOLE
     Dates: start: 20210309
  16. Cyanocobalamin 100mcg [Concomitant]
  17. GABAPENTIN [Concomitant]
     Active Substance: GABAPENTIN
     Dates: start: 20211130
  18. Calcium citrate 950mg [Concomitant]

REACTIONS (2)
  - Oedema peripheral [None]
  - Therapy cessation [None]

NARRATIVE: CASE EVENT DATE: 20221024
